APPROVED DRUG PRODUCT: LAMICTAL CD
Active Ingredient: LAMOTRIGINE
Strength: 25MG
Dosage Form/Route: TABLET, FOR SUSPENSION;ORAL
Application: N020764 | Product #002 | TE Code: AB
Applicant: GLAXOSMITHKLINE LLC
Approved: Aug 24, 1998 | RLD: Yes | RS: Yes | Type: RX